FAERS Safety Report 15617433 (Version 1)
Quarter: 2018Q4

REPORT INFORMATION
  Report Type: Spontaneous
  Country: US (occurrence: US)
  Receive Date: 20181113
  Receipt Date: 20181113
  Transmission Date: 20190205
  Serious: Yes (Hospitalization)
  Sender: FDA-Public Use
  Company Number: None

PATIENT
  Sex: Female

DRUGS (7)
  1. PAXIL [Concomitant]
     Active Substance: PAROXETINE HYDROCHLORIDE
  2. LYRICA [Concomitant]
     Active Substance: PREGABALIN
  3. ENBREL [Suspect]
     Active Substance: ETANERCEPT
     Indication: RHEUMATOID ARTHRITIS
     Dosage: ?          OTHER FREQUENCY:Q7DAYS;?
     Route: 058
     Dates: start: 20180818
  4. HYDROXYCHLOR POW [Concomitant]
  5. LEVEMIR [Concomitant]
     Active Substance: INSULIN DETEMIR
  6. DIAZEPAM. [Concomitant]
     Active Substance: DIAZEPAM
  7. PANTOPRAZOLE [Concomitant]
     Active Substance: PANTOPRAZOLE

REACTIONS (2)
  - Condition aggravated [None]
  - Hip surgery [None]
